FAERS Safety Report 7395321-7 (Version None)
Quarter: 2011Q2

REPORT INFORMATION
  Report Type: 
  Country: None (occurrence: None)
  Receive Date: 20110405
  Receipt Date: 20110322
  Transmission Date: 20111010
  Serious: Yes (Life-Threatening)
  Sender: FDA-Public Use
  Company Number: US-MYLANLABS-2011S1006210

PATIENT
  Age: 52 Year
  Sex: Female

DRUGS (3)
  1. OCTOCAINE HYDROCHLORIDE 2% W/ EPINEPHRINE 1:50000 INJ [Interacting]
     Indication: SURGERY
     Dosage: 13ML OF 0.5% LIDOCAINE WITH 1:200 000 EPINEPHRINE (TOTAL EPINEPHRINE DOSE 0.065MG)
     Route: 065
  2. PROPRANOLOL [Suspect]
     Indication: HYPERTENSION
     Route: 065
  3. DIAZEPAM [Concomitant]
     Dosage: TITRATED TO EFFECT.
     Route: 042

REACTIONS (2)
  - DRUG INTERACTION [None]
  - HYPERTENSIVE EMERGENCY [None]
